FAERS Safety Report 9377244 (Version 12)
Quarter: 2015Q3

REPORT INFORMATION
  Report Type: Report from Study
  Country: CA (occurrence: CA)
  Receive Date: 20130701
  Receipt Date: 20150924
  Transmission Date: 20151125
  Serious: Yes (Hospitalization, Other)
  Sender: FDA-Public Use
  Company Number: CA-ROCHE-GNE254331

PATIENT
  Sex: Male
  Weight: 82.17 kg

DRUGS (6)
  1. OMALIZUMAB [Suspect]
     Active Substance: OMALIZUMAB
     Route: 058
     Dates: start: 20090424
  2. SEREVENT DISKUS [Concomitant]
     Active Substance: SALMETEROL XINAFOATE
     Indication: BRONCHOSPASM
     Dosage: UNK, BID
     Route: 065
  3. ASPIRIN. [Concomitant]
     Active Substance: ASPIRIN
     Indication: PRODUCT USED FOR UNKNOWN INDICATION
  4. VENTOLIN [Concomitant]
     Active Substance: ALBUTEROL SULFATE
     Indication: BRONCHOSPASM
     Dosage: 3 PUFFS EVERY 4 HOURS
     Route: 065
  5. OMALIZUMAB [Suspect]
     Active Substance: OMALIZUMAB
     Indication: ASTHMA
     Route: 058
     Dates: start: 20071102
  6. PREDNISONE. [Concomitant]
     Active Substance: PREDNISONE

REACTIONS (26)
  - Cough [Recovering/Resolving]
  - Adrenal disorder [Unknown]
  - Respiratory disorder [Unknown]
  - Dizziness [Unknown]
  - Influenza [Unknown]
  - Prostatic specific antigen increased [Unknown]
  - Fibromyalgia [Unknown]
  - Blood phosphorus decreased [Unknown]
  - Chronic obstructive pulmonary disease [Recovering/Resolving]
  - Myalgia [Unknown]
  - Wheezing [Unknown]
  - Secretion discharge [Unknown]
  - Pain in jaw [Unknown]
  - Bone neoplasm [Unknown]
  - Sinusitis [Unknown]
  - Discomfort [Unknown]
  - Fatigue [Recovering/Resolving]
  - Cardiac failure [Unknown]
  - Weight decreased [Not Recovered/Not Resolved]
  - Bronchitis [Unknown]
  - Paraesthesia [Unknown]
  - Rhinorrhoea [Unknown]
  - Bronchial oedema [Unknown]
  - Pain [Unknown]
  - Bronchospasm [Not Recovered/Not Resolved]
  - Adrenal insufficiency [Unknown]

NARRATIVE: CASE EVENT DATE: 2014
